FAERS Safety Report 6740134-X (Version None)
Quarter: 2010Q2

REPORT INFORMATION
  Report Type: 
  Country: None (occurrence: None)
  Receive Date: 20100521
  Receipt Date: 20100517
  Transmission Date: 20101027
  Serious: Yes (Hospitalization)
  Sender: FDA-Public Use
  Company Number: 2009SP041988

PATIENT
  Age: 70 Year
  Sex: Female
  Weight: 59 kg

DRUGS (14)
  1. TEMOZOLOMIDE [Suspect]
     Indication: METASTATIC MALIGNANT MELANOMA
     Dates: start: 20090911, end: 20091116
  2. TEMOZOLOMIDE [Suspect]
     Indication: METASTATIC MALIGNANT MELANOMA
     Dates: start: 20091230, end: 20091231
  3. ABT - 888        (INVESTIGATIONAL DRUG) [Suspect]
     Indication: METASTATIC MALIGNANT MELANOMA
     Dosage: 20 MG; BID; PO; 20 MG; BID
     Dates: start: 20090922, end: 20091116
  4. ABT - 888        (INVESTIGATIONAL DRUG) [Suspect]
     Indication: METASTATIC MALIGNANT MELANOMA
     Dosage: 20 MG; BID; PO; 20 MG; BID
     Dates: start: 20091230, end: 20091231
  5. RAMIPRIL [Concomitant]
  6. BENDROFLUAZINE [Concomitant]
  7. PARACETAMOL [Concomitant]
  8. MAGNESIUM HYDROXIDE TAB [Concomitant]
  9. NULYTELY [Concomitant]
  10. MAG-LAX [Concomitant]
  11. METOCLOPRAMIDE [Concomitant]
  12. ONDANSETRON [Concomitant]
  13. VACCINIUM MACROCARPON [Concomitant]
  14. RAMIPRIL [Concomitant]

REACTIONS (8)
  - ABDOMINAL PAIN [None]
  - ANAEMIA [None]
  - CONSTIPATION [None]
  - HYPOKALAEMIA [None]
  - HYPONATRAEMIA [None]
  - LYMPHOCYTE COUNT DECREASED [None]
  - SEPSIS [None]
  - WHITE BLOOD CELL COUNT DECREASED [None]
